FAERS Safety Report 16858023 (Version 1)
Quarter: 2019Q3

REPORT INFORMATION
  Report Type: Spontaneous
  Country: US (occurrence: US)
  Receive Date: 20190926
  Receipt Date: 20190926
  Transmission Date: 20191005
  Serious: No
  Sender: FDA-Public Use
  Company Number: US-BAUSCH-BL-2019-024702

PATIENT
  Age: 71 Year
  Sex: Female

DRUGS (3)
  1. OPCON-A [Suspect]
     Active Substance: NAPHAZOLINE HYDROCHLORIDE\PHENIRAMINE MALEATE
     Route: 047
     Dates: start: 201908
  2. OPCON-A [Suspect]
     Active Substance: NAPHAZOLINE HYDROCHLORIDE\PHENIRAMINE MALEATE
     Indication: EYE PRURITUS
     Dosage: STARTED: APPROXIMATELY SEVERAL YEARS AGO.
     Route: 047
     Dates: end: 201908
  3. OPCON-A [Suspect]
     Active Substance: NAPHAZOLINE HYDROCHLORIDE\PHENIRAMINE MALEATE
     Dosage: NEW BOTTLE (PATIENT STOPPED USING SUSPECT PRODUCT DUE TO REACTIONS) (APPROXIMATELY 2 DAYS )
     Route: 047
     Dates: start: 201908, end: 201908

REACTIONS (6)
  - Eyelid exfoliation [Recovering/Resolving]
  - Therapy cessation [Unknown]
  - Eye pruritus [Recovering/Resolving]
  - Eye swelling [Recovering/Resolving]
  - Product quality issue [Unknown]
  - Condition aggravated [Recovering/Resolving]

NARRATIVE: CASE EVENT DATE: 201908
